FAERS Safety Report 21614067 (Version 2)
Quarter: 2023Q1

REPORT INFORMATION
  Report Type: Spontaneous
  Country: US (occurrence: US)
  Receive Date: 20221118
  Receipt Date: 20230222
  Transmission Date: 20230417
  Serious: Yes (Other)
  Sender: FDA-Public Use
  Company Number: US-JNJFOC-20221127494

PATIENT
  Sex: Female
  Weight: 114.86 kg

DRUGS (5)
  1. REMICADE [Suspect]
     Active Substance: INFLIXIMAB
     Indication: Sarcoidosis
     Route: 041
     Dates: start: 201806
  2. REMICADE [Suspect]
     Active Substance: INFLIXIMAB
     Indication: Sinus disorder
     Route: 041
  3. HYDROCHLOROTHIAZIDE [Concomitant]
     Active Substance: HYDROCHLOROTHIAZIDE
     Indication: Hypertension
  4. CETIRIZINE HYDROCHLORIDE [Concomitant]
     Active Substance: CETIRIZINE HYDROCHLORIDE
     Indication: Multiple allergies
  5. FLONASE [Concomitant]
     Active Substance: FLUTICASONE PROPIONATE
     Indication: Sinus disorder

REACTIONS (5)
  - Arrhythmia [Recovering/Resolving]
  - Peripheral swelling [Recovering/Resolving]
  - Fatigue [Recovering/Resolving]
  - Infusion related reaction [Unknown]
  - Off label use [Unknown]
